FAERS Safety Report 6381579-X (Version None)
Quarter: 2009Q3

REPORT INFORMATION
  Report Type: 
  Country: None (occurrence: None)
  Receive Date: 20090925
  Receipt Date: 20090910
  Transmission Date: 20100115
  Serious: Yes (Other)
  Sender: FDA-Public Use
  Company Number: DSM-2009-00704

PATIENT
  Sex: Female

DRUGS (1)
  1. OLMESARTAN          (OLMESARTAN) [Suspect]
     Indication: DRUG USE FOR UNKNOWN INDICATION
     Route: 064

REACTIONS (3)
  - DIALYSIS [None]
  - MATERNAL DRUGS AFFECTING FOETUS [None]
  - RENAL FAILURE NEONATAL [None]
